FAERS Safety Report 5855508-9 (Version None)
Quarter: 2008Q3

REPORT INFORMATION
  Report Type: 
  Country: None (occurrence: None)
  Receive Date: 20080821
  Receipt Date: 20080806
  Transmission Date: 20090109
  Serious: Yes (Hospitalization)
  Sender: FDA-Public Use
  Company Number: 234860K07USA

PATIENT
  Age: 36 Year
  Sex: Female
  Weight: 61.2356 kg

DRUGS (2)
  1. REBIF [Suspect]
     Indication: MULTIPLE SCLEROSIS
     Dosage: 44 MCG, 3 IN 1 WEEK SUBCUTANEOUS
     Route: 058
     Dates: start: 20040101, end: 20080101
  2. ZANTAC [Concomitant]

REACTIONS (18)
  - ABDOMINAL DISTENSION [None]
  - CONSTIPATION [None]
  - FOOD ALLERGY [None]
  - HAEMATEMESIS [None]
  - HAEMATOCRIT DECREASED [None]
  - HAEMOGLOBIN DECREASED [None]
  - HAEMORRHOIDS [None]
  - ILEUS PARALYTIC [None]
  - INTERNATIONAL NORMALISED RATIO ABNORMAL [None]
  - INTERNATIONAL NORMALISED RATIO DECREASED [None]
  - INTESTINAL OBSTRUCTION [None]
  - INTRA-ABDOMINAL HAEMORRHAGE [None]
  - OVARIAN CYST RUPTURED [None]
  - PROCEDURAL PAIN [None]
  - PULMONARY EMBOLISM [None]
  - URTICARIA CHRONIC [None]
  - WEIGHT DECREASED [None]
  - WHITE BLOOD CELL COUNT DECREASED [None]
